FAERS Safety Report 11375604 (Version 1)
Quarter: 2015Q3

REPORT INFORMATION
  Report Type: Spontaneous
  Country: JP (occurrence: JP)
  Receive Date: 20150813
  Receipt Date: 20150813
  Transmission Date: 20151125
  Serious: Yes (Other)
  Sender: FDA-Public Use
  Company Number: JP-PERRIGO-15JP008201

PATIENT
  Age: 60 Year
  Sex: Female

DRUGS (1)
  1. MESALAMINE RX 66.667 MG/ML 2N9 [Suspect]
     Active Substance: MESALAMINE
     Indication: COLITIS ULCERATIVE
     Dosage: UNKNOWN, UNKNOWN
     Route: 054

REACTIONS (3)
  - Pyrexia [Recovering/Resolving]
  - Chest pain [Recovering/Resolving]
  - Pleuropericarditis [Recovering/Resolving]
